FAERS Safety Report 5637259-9 (Version None)
Quarter: 2008Q1

REPORT INFORMATION
  Report Type: 
  Country: None (occurrence: None)
  Receive Date: 20080225
  Receipt Date: 20070926
  Transmission Date: 20080703
  Serious: No
  Sender: FDA-Public Use
  Company Number: US-BRISTOL-MYERS SQUIBB COMPANY-13920491

PATIENT

DRUGS (2)
  1. KENALOG [Suspect]
     Route: 008
  2. SENSORCAINE [Concomitant]

REACTIONS (1)
  - DIABETES MELLITUS [None]
